FAERS Safety Report 7600520-2 (Version None)
Quarter: 2011Q2

REPORT INFORMATION
  Report Type: 
  Country: None (occurrence: None)
  Receive Date: 20110629
  Receipt Date: 20110617
  Transmission Date: 20111010
  Serious: Yes (Hospitalization)
  Sender: FDA-Public Use
  Company Number: IE-1186761

PATIENT
  Age: 82 Year
  Sex: Male

DRUGS (13)
  1. ACETAMINOPHEN [Concomitant]
  2. CALCIUM ACETATE [Concomitant]
  3. LIPITOR [Concomitant]
  4. SEVELAMER [Concomitant]
  5. AZOPT [Concomitant]
  6. IBUPROFEN [Concomitant]
  7. DOXAZOSIN MESYLATE [Concomitant]
  8. IOPIDINE [Suspect]
     Indication: ANGLE CLOSURE GLAUCOMA
     Dosage: OPHTHALMIC
     Route: 047
     Dates: start: 20110521
  9. BUMETANIDE [Concomitant]
  10. GLICLAZIDE [Concomitant]
  11. LATANOPROST [Concomitant]
  12. NEORECORMON [Concomitant]
  13. DIAMOX SRC [Concomitant]

REACTIONS (2)
  - HEART RATE DECREASED [None]
  - DRUG LEVEL INCREASED [None]
